FAERS Safety Report 9904159 (Version 1)
Quarter: 2014Q1

REPORT INFORMATION
  Report Type: Spontaneous
  Country: US (occurrence: US)
  Receive Date: 20140218
  Receipt Date: 20140218
  Transmission Date: 20141002
  Serious: No
  Sender: FDA-Public Use
  Company Number: US-BIOGENIDEC-2014BI013774

PATIENT
  Sex: 0

DRUGS (21)
  1. TECFIDERA [Suspect]
     Indication: MULTIPLE SCLEROSIS
     Route: 048
     Dates: start: 20130718
  2. LYRICA [Concomitant]
     Indication: ABDOMINAL PAIN
  3. LYRICA [Concomitant]
     Indication: ABDOMINAL DISTENSION
  4. LOPERAMIDE [Concomitant]
  5. PRIMIDONE [Concomitant]
  6. BACLOFEN [Concomitant]
  7. NITROFURANTOIN MONO/MAC [Concomitant]
  8. GYLCERIN UQ [Concomitant]
  9. OXYBUTYNIN [Concomitant]
  10. FISH OIL [Concomitant]
  11. VITAMIN E [Concomitant]
  12. VITAMIN D [Concomitant]
  13. ALENDRONATE [Concomitant]
  14. CRANBERRY [Concomitant]
  15. CALCIUM [Concomitant]
  16. TOLAZOLINE POW HCL [Concomitant]
  17. PENTOXIFYL POW [Concomitant]
  18. PULMICORT INH [Concomitant]
  19. LASIX [Concomitant]
  20. ATROVENT HFA [Concomitant]
  21. POTASSIUM CHLORIDE [Concomitant]

REACTIONS (5)
  - Urinary tract infection [Recovered/Resolved]
  - Hypoaesthesia [Not Recovered/Not Resolved]
  - Abdominal distension [Not Recovered/Not Resolved]
  - Abdominal pain [Not Recovered/Not Resolved]
  - Rash [Not Recovered/Not Resolved]
